FAERS Safety Report 5491135-3 (Version None)
Quarter: 2007Q4

REPORT INFORMATION
  Report Type: 
  Country: None (occurrence: None)
  Receive Date: 20071019
  Receipt Date: 20071008
  Transmission Date: 20080405
  Serious: Yes (Other)
  Sender: FDA-Public Use
  Company Number: FI-PFIZER INC-2007081442

PATIENT
  Age: 45 Year
  Sex: Male

DRUGS (6)
  1. CHAMPIX [Suspect]
     Indication: SMOKING CESSATION THERAPY
     Route: 048
     Dates: start: 20070101, end: 20070901
  2. ALL OTHER THERAPEUTIC PRODUCTS [Concomitant]
  3. MAREVAN ^BRITISH DRUG HOUSES^ [Concomitant]
  4. PANADOL [Concomitant]
  5. MICARDIS [Concomitant]
  6. KEFEXIN [Concomitant]

REACTIONS (2)
  - BIPOLAR DISORDER [None]
  - PSYCHOTIC DISORDER [None]
